FAERS Safety Report 11307973 (Version 7)
Quarter: 2017Q2

REPORT INFORMATION
  Report Type: Report from Study
  Country: JP (occurrence: JP)
  Receive Date: 20150724
  Receipt Date: 20170623
  Transmission Date: 20170829
  Serious: Yes (Death, Hospitalization)
  Sender: FDA-Public Use
  Company Number: JP-ROCHE-1582848

PATIENT
  Age: 67 Year
  Sex: Male
  Weight: 48 kg

DRUGS (15)
  1. VEMURAFENIB [Suspect]
     Active Substance: VEMURAFENIB
     Indication: MALIGNANT MELANOMA
     Route: 048
     Dates: start: 20150426, end: 20150509
  2. TEGRETOL [Concomitant]
     Active Substance: CARBAMAZEPINE
     Route: 048
     Dates: start: 20151211, end: 20151211
  3. MAGMITT [Concomitant]
     Active Substance: MAGNESIUM OXIDE
     Route: 048
     Dates: start: 20150507, end: 20150625
  4. VEMURAFENIB [Suspect]
     Active Substance: VEMURAFENIB
     Indication: MALIGNANT MELANOMA
     Route: 048
     Dates: start: 20150606
  5. RANMARK [Concomitant]
     Active Substance: DENOSUMAB
     Route: 058
     Dates: start: 20151112
  6. VEMURAFENIB [Suspect]
     Active Substance: VEMURAFENIB
     Indication: MALIGNANT MELANOMA
     Route: 048
     Dates: start: 20150402, end: 20150406
  7. VEMURAFENIB [Suspect]
     Active Substance: VEMURAFENIB
     Route: 048
     Dates: start: 20151104, end: 20151221
  8. NOVAMIN (JAPAN) [Concomitant]
     Route: 048
     Dates: start: 20150508, end: 20150625
  9. E KEPPRA [Concomitant]
     Active Substance: LEVETIRACETAM
     Route: 048
     Dates: start: 20151119, end: 20151217
  10. PRIMPERAN [Concomitant]
     Active Substance: METOCLOPRAMIDE HYDROCHLORIDE
     Route: 048
     Dates: start: 20150611, end: 20150629
  11. REFLEX [Concomitant]
     Active Substance: MIRTAZAPINE
     Route: 048
     Dates: start: 20151202, end: 20151213
  12. VEMURAFENIB [Suspect]
     Active Substance: VEMURAFENIB
     Indication: MALIGNANT MELANOMA
     Route: 048
     Dates: start: 20150408, end: 20150418
  13. LOXOPROFEN SODIUM [Suspect]
     Active Substance: LOXOPROFEN SODIUM
     Indication: PRODUCT USED FOR UNKNOWN INDICATION
     Dosage: TAKEN AS NEEDED
     Route: 048
     Dates: start: 20150416, end: 20151210
  14. DENOTAS [Concomitant]
     Active Substance: CALCIUM CARBONATE\CHOLECALCIFEROL\MAGNESIUM CARBONATE
     Route: 048
     Dates: start: 20150402, end: 20151214
  15. QUETIAPINE. [Concomitant]
     Active Substance: QUETIAPINE
     Route: 048
     Dates: start: 20151208, end: 20151218

REACTIONS (8)
  - Photosensitivity reaction [Recovered/Resolved]
  - Pain [Recovered/Resolved]
  - Constipation [Unknown]
  - Malignant melanoma [Fatal]
  - Facial paralysis [Recovering/Resolving]
  - Muscular weakness [Recovering/Resolving]
  - Insomnia [Recovered/Resolved]
  - Drug eruption [Recovered/Resolved]

NARRATIVE: CASE EVENT DATE: 20150405
